FAERS Safety Report 15656894 (Version 2)
Quarter: 2018Q4

REPORT INFORMATION
  Report Type: Spontaneous
  Country: US (occurrence: US)
  Receive Date: 20181126
  Receipt Date: 20181218
  Transmission Date: 20190205
  Serious: No
  Sender: FDA-Public Use
  Company Number: US-ASTRAZENECA-2018SF53017

PATIENT
  Age: 990 Month
  Sex: Male
  Weight: 74.8 kg

DRUGS (6)
  1. FLOMAX [Concomitant]
     Active Substance: TAMSULOSIN HYDROCHLORIDE
     Indication: URINARY RETENTION
     Dosage: UNKNOWN
     Route: 065
     Dates: start: 2018
  2. FLONASE [Concomitant]
     Active Substance: FLUTICASONE PROPIONATE
     Dosage: UNKNOWN
     Route: 045
  3. GABAPENTIN. [Concomitant]
     Active Substance: GABAPENTIN
     Indication: PELVIC PAIN
     Route: 065
     Dates: start: 2016
  4. ALBUTEROL. [Concomitant]
     Active Substance: ALBUTEROL
     Indication: ASTHMA PROPHYLAXIS
     Dosage: AS REQUIRED
     Route: 055
  5. PULMICORT FLEXHALER [Suspect]
     Active Substance: BUDESONIDE
     Indication: ASTHMA
     Route: 055
     Dates: start: 2016
  6. ATIVAN  (GENERIC) [Concomitant]
     Active Substance: LORAZEPAM
     Indication: PELVIC PAIN
     Route: 055
     Dates: start: 2016

REACTIONS (7)
  - Blood pressure abnormal [Unknown]
  - Off label use [Unknown]
  - Memory impairment [Unknown]
  - Drug dose omission by device [Unknown]
  - Device malfunction [Unknown]
  - Urinary tract disorder [Unknown]
  - Intentional product misuse [Unknown]

NARRATIVE: CASE EVENT DATE: 2018
